FAERS Safety Report 20182900 (Version 7)
Quarter: 2023Q1

REPORT INFORMATION
  Report Type: Report from Study
  Country: US (occurrence: US)
  Receive Date: 20211214
  Receipt Date: 20230222
  Transmission Date: 20230418
  Serious: Yes (Other)
  Sender: FDA-Public Use
  Company Number: US-MYLANLABS-2021M1023209

PATIENT
  Age: 50 Year
  Sex: Female
  Weight: 68.04 kg

DRUGS (6)
  1. GLATIRAMER ACETATE [Suspect]
     Active Substance: GLATIRAMER ACETATE
     Indication: Multiple sclerosis
     Dosage: 40 MILLIGRAM, 3XW
     Route: 058
  2. GLATIRAMER ACETATE [Suspect]
     Active Substance: GLATIRAMER ACETATE
     Indication: Relapsing-remitting multiple sclerosis
     Dosage: 40 MILLIGRAM, 3XW
     Route: 058
  3. GLATIRAMER ACETATE [Suspect]
     Active Substance: GLATIRAMER ACETATE
     Dosage: 40 MILLIGRAM, 3XW
     Route: 058
  4. GLATIRAMER ACETATE [Suspect]
     Active Substance: GLATIRAMER ACETATE
     Dosage: 40 MILLIGRAM, 3XW
     Route: 058
  5. DEVICE [Suspect]
     Active Substance: DEVICE
     Indication: Multiple sclerosis
     Dosage: UNK
     Route: 065
  6. DEVICE [Suspect]
     Active Substance: DEVICE
     Indication: Relapsing-remitting multiple sclerosis
     Dosage: UNK
     Route: 065

REACTIONS (19)
  - Cardiac flutter [Unknown]
  - Nervousness [Unknown]
  - Needle issue [Unknown]
  - Feeling abnormal [Unknown]
  - COVID-19 [Unknown]
  - Injection site bruising [Unknown]
  - Injection site discharge [Unknown]
  - Injection site swelling [Unknown]
  - Dyspnoea [Unknown]
  - Nausea [Recovered/Resolved]
  - Injection site haemorrhage [Unknown]
  - Fatigue [Not Recovered/Not Resolved]
  - Device issue [Unknown]
  - Device use issue [Recovered/Resolved]
  - Device leakage [Unknown]
  - Incorrect dose administered [Unknown]
  - Product storage error [Unknown]
  - Product dose omission issue [Unknown]
  - Expired product administered [Unknown]

NARRATIVE: CASE EVENT DATE: 20210412
